FAERS Safety Report 10736028 (Version 1)
Quarter: 2015Q1

REPORT INFORMATION
  Report Type: Spontaneous
  Country: US (occurrence: None)
  Receive Date: 20150121
  Receipt Date: 20150121
  Transmission Date: 20150721
  Serious: Yes (Hospitalization)
  Sender: FDA-Public Use
  Company Number: 2015-US-000539

PATIENT
  Sex: Female
  Weight: 70.3 kg

DRUGS (6)
  1. PROVIGIL [Concomitant]
     Active Substance: MODAFINIL
  2. DEXEDRINE (DEXAMETHASONE SULFATE) [Concomitant]
  3. SPIRIVA (TIOTROPIUM BROMIDE) [Concomitant]
  4. XYREM [Suspect]
     Active Substance: SODIUM OXYBATE
     Indication: NARCOLEPSY
     Route: 048
     Dates: start: 200302, end: 2003
  5. XYREM [Suspect]
     Active Substance: SODIUM OXYBATE
     Indication: CATAPLEXY
     Route: 048
     Dates: start: 200302, end: 2003
  6. ALAVERT (LORATADINE) [Concomitant]

REACTIONS (4)
  - Pneumonia [None]
  - Abdominal pain upper [None]
  - Inappropriate schedule of drug administration [None]
  - Diarrhoea [None]

NARRATIVE: CASE EVENT DATE: 2012
